FAERS Safety Report 7636787-4 (Version None)
Quarter: 2011Q3

REPORT INFORMATION
  Report Type: 
  Country: None (occurrence: None)
  Receive Date: 20110719
  Receipt Date: 20110702
  Transmission Date: 20111222
  Serious: Yes (Hospitalization)
  Sender: FDA-Public Use
  Company Number: GER/USA/11/0018756

PATIENT
  Age: 13 Year
  Sex: Male
  Weight: 53.2 kg

DRUGS (10)
  1. UNSPECIFIED ANTICHOLINERGIC (ANTICHOLINERGICS) [Suspect]
     Indication: PRODUCT USED FOR UNKNOWN INDICATION
  2. NADOLOL [Concomitant]
  3. DESFLURANE [Suspect]
     Indication: PRODUCT USED FOR UNKNOWN INDICATION
  4. ISOFLURANE [Suspect]
     Indication: PRODUCT USED FOR UNKNOWN INDICATION
  5. UNSPECIFIED ANTICHOLINESTERASE (ANTICHOLINESTERASES) [Suspect]
     Indication: PRODUCT USED FOR UNKNOWN INDICATION
  6. POTASSIUM SUPPLEMENTS (POTASSIUM) [Concomitant]
  7. ONDANSETRON [Suspect]
     Indication: PRODUCT USED FOR UNKNOWN INDICATION
     Dosage: INTRAVENOUS
     Route: 042
  8. SEVOFLURANE [Suspect]
     Indication: PRODUCT USED FOR UNKNOWN INDICATION
  9. VECURONIUM BROMIDE [Concomitant]
  10. MEXILETINE HCL [Concomitant]

REACTIONS (2)
  - EXTRASYSTOLES [None]
  - VENTRICULAR TACHYCARDIA [None]
